FAERS Safety Report 8252445-X (Version None)
Quarter: 2012Q2

REPORT INFORMATION
  Report Type: 
  Country: None (occurrence: None)
  Receive Date: 20120402
  Receipt Date: 20110711
  Transmission Date: 20120825
  Serious: No
  Sender: FDA-Public Use
  Company Number: US-ABBOTT-11P-163-0837680-00

PATIENT
  Sex: Male
  Weight: 81.72 kg

DRUGS (8)
  1. LIPITOR [Concomitant]
     Indication: BLOOD CHOLESTEROL INCREASED
  2. LOVAZA [Concomitant]
     Indication: BLOOD CHOLESTEROL INCREASED
  3. ASPIRIN [Concomitant]
     Indication: ROUTINE HEALTH MAINTENANCE
  4. BENICAR [Concomitant]
     Indication: HYPERTENSION
  5. ALLOPURINOL [Concomitant]
     Indication: PROPHYLAXIS
  6. LOVAZA [Concomitant]
     Indication: BLOOD TRIGLYCERIDES INCREASED
  7. ANDROGEL [Suspect]
     Indication: BLOOD TESTOSTERONE DECREASED
     Dosage: 4 PUMPS DAILY
     Dates: start: 20110401
  8. GEMFIBROZIL [Concomitant]
     Indication: PRODUCT USED FOR UNKNOWN INDICATION

REACTIONS (1)
  - ALOPECIA [None]
